FAERS Safety Report 8397358 (Version 2)
Quarter: 2012Q4

REPORT INFORMATION
  Report Type: Spontaneous
  Country: US (occurrence: None)
  Receive Date: 20111227
  Receipt Date: 20120426
  Transmission Date: 20130627
  Serious: Yes (Hospitalization, Other)
  Sender: FDA-Public Use
  Company Number: PHEH2011US03492

PATIENT
  Age: 45 Year
  Sex: Female

DRUGS (2)
  1. GILENYA [Suspect]
     Indication: MULTIPLE SCLEROSIS
     Dosage: 0.5 MG, QD, ORAL
     Route: 048
     Dates: start: 20110419
  2. OXYCONTIN [Suspect]

REACTIONS (4)
  - MULTIPLE SCLEROSIS RELAPSE [None]
  - TENDON DISORDER [None]
  - VISION BLURRED [None]
  - MUSCULAR WEAKNESS [None]
